FAERS Safety Report 19519419 (Version 1)
Quarter: 2021Q3

REPORT INFORMATION
  Report Type: Spontaneous
  Country: US (occurrence: US)
  Receive Date: 20210712
  Receipt Date: 20210712
  Transmission Date: 20211014
  Serious: Yes (Other)
  Sender: FDA-Public Use
  Company Number: US-GLAXOSMITHKLINE-US2021GSK144233

PATIENT
  Sex: Male

DRUGS (7)
  1. ZANTAC [Suspect]
     Active Substance: RANITIDINE HYDROCHLORIDE
     Indication: COLITIS ULCERATIVE
     Dosage: 150 MG
     Route: 065
     Dates: start: 198407, end: 201707
  2. ZANTAC [Suspect]
     Active Substance: RANITIDINE HYDROCHLORIDE
     Indication: COLITIS ULCERATIVE
     Dosage: 150 MG
     Route: 065
     Dates: start: 198407, end: 201707
  3. RANITIDINE. [Suspect]
     Active Substance: RANITIDINE
     Indication: COLITIS ULCERATIVE
     Dosage: 150 MG
     Route: 065
     Dates: start: 199707, end: 201707
  4. RANITIDINE CAPSULE [Suspect]
     Active Substance: RANITIDINE
     Indication: COLITIS ULCERATIVE
     Dosage: 150 MG
     Route: 065
     Dates: start: 198407, end: 201707
  5. ZANTAC [Suspect]
     Active Substance: RANITIDINE HYDROCHLORIDE
     Indication: COLITIS ULCERATIVE
     Dosage: 150 MG
     Route: 065
     Dates: start: 198407, end: 201707
  6. RANITIDINE. [Suspect]
     Active Substance: RANITIDINE
     Indication: COLITIS ULCERATIVE
  7. RANITIDINE. [Suspect]
     Active Substance: RANITIDINE
     Indication: COLITIS ULCERATIVE
     Dosage: 150 MG
     Route: 065
     Dates: start: 199707, end: 201707

REACTIONS (1)
  - Colorectal cancer [Unknown]
